FAERS Safety Report 24302633 (Version 1)
Quarter: 2024Q3

REPORT INFORMATION
  Report Type: Spontaneous
  Country: CN (occurrence: CN)
  Receive Date: 20240910
  Receipt Date: 20240910
  Transmission Date: 20241016
  Serious: Yes (Other)
  Sender: PFIZER
  Company Number: CN-PFIZER INC-202400252300

PATIENT
  Age: 45 Year
  Sex: Male

DRUGS (1)
  1. LITFULO [Suspect]
     Active Substance: RITLECITINIB TOSYLATE
     Indication: Alopecia
     Dosage: UNK
     Route: 048

REACTIONS (7)
  - Haematochezia [Unknown]
  - CD4 lymphocytes decreased [Unknown]
  - Lymphocyte percentage decreased [Unknown]
  - Viral infection [Unknown]
  - Abdominal discomfort [Unknown]
  - Pyrexia [Unknown]
  - Erythema [Unknown]
